FAERS Safety Report 24003838 (Version 1)
Quarter: 2024Q2

REPORT INFORMATION
  Report Type: Spontaneous
  Country: CN (occurrence: CN)
  Receive Date: 20240624
  Receipt Date: 20240624
  Transmission Date: 20240716
  Serious: Yes (Hospitalization, Other)
  Sender: FDA-Public Use
  Company Number: CN-MLMSERVICE-20240607-PI091936-00263-1

PATIENT
  Age: 27 Year
  Sex: Female

DRUGS (23)
  1. GANCICLOVIR [Suspect]
     Active Substance: GANCICLOVIR
     Indication: Anti-infective therapy
     Route: 065
     Dates: start: 202207
  2. CHLORAMPHENICOL [Suspect]
     Active Substance: CHLORAMPHENICOL
     Indication: Anti-infective therapy
     Route: 065
     Dates: start: 202207, end: 20220829
  3. IMIPENEM [Suspect]
     Active Substance: IMIPENEM
     Indication: Anti-infective therapy
     Route: 065
     Dates: start: 202207, end: 20220829
  4. OSELTAMIVIR [Suspect]
     Active Substance: OSELTAMIVIR
     Indication: Antiviral treatment
     Route: 065
     Dates: start: 202207
  5. CEFTAZIDIME [Suspect]
     Active Substance: CEFTAZIDIME
     Indication: Anti-infective therapy
     Route: 065
     Dates: start: 2022, end: 20220829
  6. CEFTAZIDIME [Suspect]
     Active Substance: CEFTAZIDIME
     Indication: Antibiotic therapy
  7. ACETAMINOPHEN [Suspect]
     Active Substance: ACETAMINOPHEN
     Indication: Product used for unknown indication
     Route: 065
  8. PIPERACILLIN SODIUM\TAZOBACTAM SODIUM [Suspect]
     Active Substance: PIPERACILLIN SODIUM\TAZOBACTAM SODIUM
     Indication: Anti-infective therapy
     Route: 065
     Dates: start: 20220724, end: 20220724
  9. MEROPENEM [Suspect]
     Active Substance: MEROPENEM
     Indication: Anti-infective therapy
     Route: 065
     Dates: start: 20220724, end: 20220829
  10. MEROPENEM [Suspect]
     Active Substance: MEROPENEM
     Indication: Antibiotic therapy
  11. OXYGEN [Suspect]
     Active Substance: OXYGEN
     Indication: Oxygen therapy
     Route: 055
     Dates: start: 2022
  12. AMINOPHYLLINE [Suspect]
     Active Substance: AMINOPHYLLINE
     Indication: Anti-infective therapy
     Route: 065
     Dates: start: 2022
  13. AMINOPHYLLINE [Suspect]
     Active Substance: AMINOPHYLLINE
     Indication: Antibiotic therapy
  14. POTASSIUM [Suspect]
     Active Substance: POTASSIUM
     Indication: Mineral supplementation
     Route: 065
     Dates: start: 2022
  15. AMIODARONE [Suspect]
     Active Substance: AMIODARONE
     Indication: Arrhythmia
     Route: 065
     Dates: start: 202207
  16. DOPAMINE [Suspect]
     Active Substance: DOPAMINE HYDROCHLORIDE
     Indication: Vasopressive therapy
     Route: 065
     Dates: start: 202207
  17. NOREPINEPHRINE [Suspect]
     Active Substance: NOREPINEPHRINE\NOREPINEPHRINE BITARTRATE
     Indication: Vasopressive therapy
     Route: 065
     Dates: start: 202207
  18. PERAMIVIR [Suspect]
     Active Substance: PERAMIVIR
     Indication: Antiviral treatment
     Route: 065
     Dates: start: 202207
  19. HYDROCORTISONE [Suspect]
     Active Substance: HYDROCORTISONE\HYDROCORTISONE ACETATE
     Indication: Vasopressive therapy
     Route: 065
     Dates: start: 202207
  20. ALBUMIN HUMAN [Suspect]
     Active Substance: ALBUMIN HUMAN
     Indication: Supplementation therapy
     Route: 065
     Dates: start: 202207
  21. IMMUNE GLOBULIN NOS [Suspect]
     Active Substance: IMMUNE GLOBULIN NOS
     Indication: Immunomodulatory therapy
     Route: 065
     Dates: start: 202207
  22. IMMUNE GLOBULIN NOS [Suspect]
     Active Substance: IMMUNE GLOBULIN NOS
     Indication: Antiinflammatory therapy
  23. CASPOFUNGIN [Suspect]
     Active Substance: CASPOFUNGIN
     Indication: Anti-infective therapy
     Route: 065
     Dates: start: 202207

REACTIONS (6)
  - Muscular weakness [Recovering/Resolving]
  - Dysbiosis [Recovering/Resolving]
  - Intestinal obstruction [Recovering/Resolving]
  - Multiple organ dysfunction syndrome [Recovering/Resolving]
  - Functional gastrointestinal disorder [Recovering/Resolving]
  - Maternal exposure during pregnancy [Unknown]

NARRATIVE: CASE EVENT DATE: 20220101
